FAERS Safety Report 10891747 (Version 2)
Quarter: 2015Q3

REPORT INFORMATION
  Report Type: Spontaneous
  Country: US (occurrence: US)
  Receive Date: 20150306
  Receipt Date: 20150917
  Transmission Date: 20151125
  Serious: No
  Sender: FDA-Public Use
  Company Number: US-009507513-1502USA010967

PATIENT
  Age: 34 Year
  Sex: Female
  Weight: 83.9 kg

DRUGS (2)
  1. NASONEX [Concomitant]
     Active Substance: MOMETASONE FUROATE
  2. GRASTEK [Suspect]
     Active Substance: PHLEUM PRATENSE POLLEN
     Indication: SEASONAL ALLERGY
     Dosage: 1 TABLET, ONCE A DAY; STRENGTH: 2800 BAU
     Route: 060
     Dates: start: 20150210

REACTIONS (3)
  - Eye pruritus [Recovered/Resolved]
  - Tongue pruritus [Recovered/Resolved]
  - Type I hypersensitivity [Unknown]

NARRATIVE: CASE EVENT DATE: 2015
